FAERS Safety Report 11006064 (Version 2)
Quarter: 2015Q2

REPORT INFORMATION
  Report Type: Spontaneous
  Country: IT (occurrence: IT)
  Receive Date: 20150409
  Receipt Date: 20150421
  Transmission Date: 20150821
  Serious: Yes (Hospitalization)
  Sender: FDA-Public Use
  Company Number: PHHY2015IT041349

PATIENT
  Age: 9 Year
  Sex: Male

DRUGS (2)
  1. ILARIS [Suspect]
     Active Substance: CANAKINUMAB
     Indication: MUCKLE-WELLS SYNDROME
     Dosage: 2 MG/KG, CYCLIC (EVERY 8 WEEKS)
     Route: 058
     Dates: start: 20130711
  2. ILARIS [Suspect]
     Active Substance: CANAKINUMAB
     Dosage: 2 MG/KG, EVERY 8 WEEKS
     Route: 058
     Dates: start: 20150323

REACTIONS (2)
  - Effusion [Unknown]
  - Pneumonia [Unknown]

NARRATIVE: CASE EVENT DATE: 20150329
